FAERS Safety Report 6780799-X (Version None)
Quarter: 2010Q2

REPORT INFORMATION
  Report Type: 
  Country: None (occurrence: None)
  Receive Date: 20100621
  Receipt Date: 20100607
  Transmission Date: 20101027
  Serious: Yes (Hospitalization, Other)
  Sender: FDA-Public Use
  Company Number: US-BAYER-201015451NA

PATIENT
  Age: 35 Year
  Sex: Female
  Weight: 53 kg

DRUGS (5)
  1. YAZ [Suspect]
     Indication: CONTRACEPTION
     Route: 048
     Dates: start: 20090212, end: 20090430
  2. ANTIBIOTICS [Concomitant]
     Dates: start: 20000101, end: 20100101
  3. NONSTEROIDAL ANTI-INFLAMMATORY DRUGS [Concomitant]
  4. LEXAPRO [Concomitant]
     Indication: ANXIETY
     Dates: start: 20000101, end: 20100101
  5. PAXIL [Concomitant]
     Indication: ANXIETY
     Dates: start: 20000101, end: 20100101

REACTIONS (6)
  - ABDOMINAL TENDERNESS [None]
  - BACK PAIN [None]
  - CHOLECYSTITIS ACUTE [None]
  - CHOLELITHIASIS [None]
  - NAUSEA [None]
  - VOMITING [None]
